FAERS Safety Report 10446866 (Version 1)
Quarter: 2014Q3

REPORT INFORMATION
  Report Type: Spontaneous
  Country: US (occurrence: US)
  Receive Date: 20140911
  Receipt Date: 20140911
  Transmission Date: 20150326
  Serious: No
  Sender: FDA-Public Use
  Company Number: US-ASTRAZENECA-2014SE66666

PATIENT
  Sex: Female

DRUGS (3)
  1. ALPRAZOLAM. [Interacting]
     Active Substance: ALPRAZOLAM
     Dosage: (MANUFACTURED BY GREENSTONE)
     Route: 065
  2. NEXIUM [Suspect]
     Active Substance: ESOMEPRAZOLE MAGNESIUM
     Route: 048
     Dates: start: 20140901
  3. UNSPECIFIED MEDICATION [Interacting]
     Active Substance: UNSPECIFIED INGREDIENT
     Route: 065

REACTIONS (1)
  - Drug interaction [Unknown]

NARRATIVE: CASE EVENT DATE: 201409
